FAERS Safety Report 25184112 (Version 1)
Quarter: 2025Q2

REPORT INFORMATION
  Report Type: Spontaneous
  Country: BR (occurrence: BR)
  Receive Date: 20250410
  Receipt Date: 20250410
  Transmission Date: 20250716
  Serious: Yes (Hospitalization)
  Sender: GALDERMA
  Company Number: BR-GALDERMA-BR2024016031

PATIENT

DRUGS (2)
  1. EPIDUO FORTE [Suspect]
     Active Substance: ADAPALENE\BENZOYL PEROXIDE
     Indication: Acne
     Route: 061
     Dates: start: 20241025, end: 20241026
  2. AZITHROMYCIN [Concomitant]
     Active Substance: AZITHROMYCIN
     Indication: Sinusitis
     Dates: start: 202410

REACTIONS (8)
  - Hypersensitivity [Recovering/Resolving]
  - Application site oedema [Recovered/Resolved]
  - Pruritus [Recovering/Resolving]
  - Hyperaemia [Recovering/Resolving]
  - Throat irritation [Recovering/Resolving]
  - Application site erythema [Recovering/Resolving]
  - Dry skin [Recovering/Resolving]
  - Headache [Recovering/Resolving]

NARRATIVE: CASE EVENT DATE: 20241001
